FAERS Safety Report 18061743 (Version 1)
Quarter: 2020Q3

REPORT INFORMATION
  Report Type: Spontaneous
  Country: US (occurrence: US)
  Receive Date: 20200723
  Receipt Date: 20200723
  Transmission Date: 20201103
  Serious: Yes (Hospitalization, Other)
  Sender: FDA-Public Use
  Company Number: US-MYLANLABS-2020M1065777

PATIENT
  Age: 48 Year
  Sex: Male

DRUGS (1)
  1. TACROLIMUS CAPSULES [Suspect]
     Active Substance: TACROLIMUS
     Indication: PRODUCT USED FOR UNKNOWN INDICATION
     Dosage: UNK

REACTIONS (2)
  - Atypical haemolytic uraemic syndrome [Unknown]
  - Thrombotic microangiopathy [Unknown]
